FAERS Safety Report 8912942 (Version 1)
Quarter: 2012Q4

REPORT INFORMATION
  Report Type: 
  Country: ES (occurrence: ES)
  Receive Date: 20121116
  Receipt Date: 20121116
  Transmission Date: 20130627
  Serious: Yes (Hospitalization)
  Sender: FDA-Public Use
  Company Number: ES-VIIV HEALTHCARE LIMITED-B0845398A

PATIENT
  Age: 51 Year
  Sex: Female

DRUGS (6)
  1. CELSENTRI [Suspect]
     Indication: HIV INFECTION
     Dosage: 300MG Per day
     Route: 048
     Dates: start: 20120725, end: 20120804
  2. SEPTRIN FORTE [Suspect]
     Indication: OPPORTUNISTIC INFECTION PROPHYLAXIS
     Dosage: 1TAB Per day
     Route: 048
     Dates: start: 20120613, end: 20120806
  3. VALCYTE [Suspect]
     Indication: OPPORTUNISTIC INFECTION PROPHYLAXIS
     Dosage: 450MG Per day
     Route: 048
     Dates: start: 20120613, end: 20120806
  4. PREZISTA [Suspect]
     Indication: HIV INFECTION
     Dosage: 600MG Per day
     Route: 048
     Dates: start: 20120725, end: 20120804
  5. NORVIR [Suspect]
     Indication: HIV INFECTION
     Dosage: 100MG Per day
     Route: 048
     Dates: start: 20120725, end: 20120804
  6. INTELENCE [Suspect]
     Indication: HIV INFECTION
     Dosage: 200MG Per day
     Route: 048
     Dates: start: 20120725, end: 20120804

REACTIONS (1)
  - Hepatitis cholestatic [Recovering/Resolving]
